FAERS Safety Report 25628143 (Version 3)
Quarter: 2025Q3

REPORT INFORMATION
  Report Type: Report from Study
  Country: US (occurrence: US)
  Receive Date: 20250731
  Receipt Date: 20250907
  Transmission Date: 20251021
  Serious: Yes (Other)
  Sender: NOVARTIS
  Company Number: US-002147023-NVSC2025US120151

PATIENT
  Sex: Female

DRUGS (5)
  1. SCEMBLIX [Suspect]
     Active Substance: ASCIMINIB HYDROCHLORIDE
     Indication: Philadelphia positive chronic myeloid leukaemia
     Dosage: 80 MG/KG, QD
     Route: 048
     Dates: start: 20250727
  2. SCEMBLIX [Suspect]
     Active Substance: ASCIMINIB HYDROCHLORIDE
     Dosage: 40 MG, QD
     Route: 065
     Dates: start: 20250814
  3. GLEEVEC [Suspect]
     Active Substance: IMATINIB MESYLATE
     Indication: Philadelphia positive chronic myeloid leukaemia
     Route: 065
  4. TASIGNA [Suspect]
     Active Substance: NILOTINIB
     Indication: Philadelphia positive chronic myeloid leukaemia
     Route: 065
  5. ASPIRIN [Concomitant]
     Active Substance: ASPIRIN
     Indication: Product used for unknown indication
     Route: 065

REACTIONS (9)
  - Pericardial effusion [Recovering/Resolving]
  - Rash [Recovering/Resolving]
  - Pyrexia [Recovering/Resolving]
  - Pruritus [Recovering/Resolving]
  - Petechiae [Recovering/Resolving]
  - Erythema [Recovering/Resolving]
  - Lipids increased [Recovering/Resolving]
  - Incorrect dose administered [Unknown]
  - Therapeutic product effect decreased [Recovering/Resolving]
